FAERS Safety Report 15575679 (Version 1)
Quarter: 2018Q4

REPORT INFORMATION
  Report Type: Spontaneous
  Country: US (occurrence: US)
  Receive Date: 20181101
  Receipt Date: 20181101
  Transmission Date: 20190205
  Serious: Yes (Hospitalization)
  Sender: FDA-Public Use
  Company Number: None

PATIENT
  Age: 84 Year
  Sex: Male
  Weight: 54 kg

DRUGS (1)
  1. ERTAPENEM SODIUM 1GM SDV [Suspect]
     Active Substance: ERTAPENEM SODIUM
     Indication: ABDOMINAL ABSCESS
     Route: 042
     Dates: start: 20181019, end: 20181028

REACTIONS (3)
  - Encephalopathy [None]
  - Infection [None]
  - Leukocytosis [None]

NARRATIVE: CASE EVENT DATE: 20181028
